FAERS Safety Report 4885181-8 (Version None)
Quarter: 2005Q4

REPORT INFORMATION
  Report Type: 
  Country: None (occurrence: None)
  Receive Date: 20051201
  Receipt Date: 20050908
  Transmission Date: 20060501
  Serious: No
  Sender: FDA-Public Use
  Company Number: 2005PV001825

PATIENT
  Age: 78 Year
  Sex: Female
  Weight: 82.5547 kg

DRUGS (12)
  1. BYETTA [Suspect]
     Indication: DIABETES MELLITUS NON-INSULIN-DEPENDENT
     Dosage: 5 MCG; BID; SC
     Route: 058
     Dates: start: 20050810, end: 20050822
  2. AMARYL [Concomitant]
  3. DIOVAN [Concomitant]
  4. LANOXN [Concomitant]
  5. FUROSEMIDE [Concomitant]
  6. ASPIRIN [Concomitant]
  7. EVISTA [Concomitant]
  8. AMITRIPTYLINE HCL [Concomitant]
  9. TRICOR [Concomitant]
  10. NIASPAN [Concomitant]
  11. PRAVACHOL [Concomitant]
  12. MECLIZINE [Concomitant]

REACTIONS (4)
  - ABDOMINAL PAIN [None]
  - DEHYDRATION [None]
  - DIARRHOEA [None]
  - DIZZINESS [None]
